FAERS Safety Report 6049985-0 (Version None)
Quarter: 2009Q1

REPORT INFORMATION
  Report Type: 
  Country: None (occurrence: None)
  Receive Date: 20090121
  Receipt Date: 20090107
  Transmission Date: 20090719
  Serious: Yes (Disabling)
  Sender: FDA-Public Use
  Company Number: 2009EK000011

PATIENT

DRUGS (1)
  1. NICARDIPINE HCL [Suspect]
     Indication: VASOSPASM
     Dosage: IART

REACTIONS (4)
  - CONDITION AGGRAVATED [None]
  - HAEMORRHAGE [None]
  - PNEUMONIA [None]
  - VASOSPASM [None]
